FAERS Safety Report 17098037 (Version 1)
Quarter: 2019Q4

REPORT INFORMATION
  Report Type: Spontaneous
  Country: US (occurrence: US)
  Receive Date: 20191202
  Receipt Date: 20191202
  Transmission Date: 20200122
  Serious: Yes (Other)
  Sender: FDA-Public Use
  Company Number: US-PFIZER INC-2019516903

PATIENT
  Age: 64 Year
  Sex: Male
  Weight: 95.24 kg

DRUGS (3)
  1. ARMODAFINIL. [Interacting]
     Active Substance: ARMODAFINIL
     Dosage: 400 MG, UNK
  2. DOXEPIN HCL [Suspect]
     Active Substance: DOXEPIN HYDROCHLORIDE
     Dosage: 10 MG, 1X/DAY (BED TIME)
  3. LEXAPRO [Interacting]
     Active Substance: ESCITALOPRAM OXALATE
     Dosage: 15 MG, DAILY

REACTIONS (4)
  - Drug interaction [Unknown]
  - Somnolence [Unknown]
  - Depressed level of consciousness [Unknown]
  - Sedation [Unknown]
